FAERS Safety Report 16191299 (Version 2)
Quarter: 2019Q3

REPORT INFORMATION
  Report Type: Report from Study
  Country: CO (occurrence: CO)
  Receive Date: 20190412
  Receipt Date: 20190917
  Transmission Date: 20191004
  Serious: Yes (Hospitalization, Other)
  Sender: FDA-Public Use
  Company Number: PHHY2019CO066774

PATIENT
  Sex: Female
  Weight: 40 kg

DRUGS (1)
  1. REVOLADE [Suspect]
     Active Substance: ELTROMBOPAG
     Indication: IMMUNE THROMBOCYTOPENIC PURPURA
     Dosage: 50 MG, QD
     Route: 048
     Dates: start: 2016

REACTIONS (9)
  - Diabetes mellitus [Recovering/Resolving]
  - Eating disorder [Unknown]
  - Haemorrhage [Not Recovered/Not Resolved]
  - Diarrhoea [Unknown]
  - Mobility decreased [Unknown]
  - Blood urine present [Unknown]
  - Platelet count decreased [Unknown]
  - Abdominal pain upper [Not Recovered/Not Resolved]
  - Malaise [Unknown]
